FAERS Safety Report 4587676-3 (Version None)
Quarter: 2005Q1

REPORT INFORMATION
  Report Type: 
  Country: None (occurrence: None)
  Receive Date: 20050218
  Receipt Date: 20050210
  Transmission Date: 20050727
  Serious: Yes (Other)
  Sender: FDA-Public Use
  Company Number: US-MERCK-0502USA01448

PATIENT
  Age: 55 Year
  Sex: Female

DRUGS (4)
  1. COZAAR [Suspect]
     Route: 048
     Dates: start: 20000101, end: 20040801
  2. [THERAPY UNSPECIFIED] [Concomitant]
     Route: 065
  3. DIOVAN [Concomitant]
     Route: 065
  4. TOPROL-XL [Concomitant]
     Route: 065

REACTIONS (3)
  - CEREBROVASCULAR ACCIDENT [None]
  - OCULAR VASCULAR DISORDER [None]
  - RETINAL ISCHAEMIA [None]
